FAERS Safety Report 8432826-1 (Version None)
Quarter: 2012Q2

REPORT INFORMATION
  Report Type: 
  Country: None (occurrence: None)
  Receive Date: 20120323
  Receipt Date: 20110810
  Transmission Date: 20120825
  Serious: Yes (Hospitalization, Disabling)
  Sender: FDA-Public Use
  Company Number: 163-21880-11071235

PATIENT
  Age: 58 Year
  Sex: Male

DRUGS (12)
  1. REVLIMID [Suspect]
  2. REVLIMID [Suspect]
     Indication: MULTIPLE MYELOMA
     Dosage: 10 MG, 1 IN 1 D, PO
     Route: 048
     Dates: start: 20090722, end: 20110707
  3. GABAPENTIN [Concomitant]
  4. OMEPRAZOLE [Concomitant]
  5. LEVAQUIN [Concomitant]
  6. HYDROCO/APAP (PROCET /USA/) [Concomitant]
  7. ACYCLOVIR [Concomitant]
  8. BACTRIM [Concomitant]
  9. MULTIVITAMIN [Concomitant]
  10. CITALOPRAM HYDROBROMIDE [Concomitant]
  11. ZOMETA [Concomitant]
  12. ACETAMINOPHEN [Concomitant]

REACTIONS (1)
  - CHOLECYSTITIS [None]
